FAERS Safety Report 7789429-1 (Version None)
Quarter: 2011Q3

REPORT INFORMATION
  Report Type: 
  Country: None (occurrence: None)
  Receive Date: 20110930
  Receipt Date: 20110919
  Transmission Date: 20111222
  Serious: Yes (Hospitalization)
  Sender: FDA-Public Use
  Company Number: US-JNJFOC-20110906309

PATIENT
  Sex: Female
  Weight: 55.3 kg

DRUGS (2)
  1. REMICADE [Suspect]
     Indication: COLITIS
     Route: 042
     Dates: start: 20050429
  2. REMICADE [Suspect]
     Route: 042
     Dates: start: 20040128

REACTIONS (2)
  - INTESTINAL OBSTRUCTION [None]
  - ADHESION [None]
